FAERS Safety Report 9325378 (Version 6)
Quarter: 2013Q3

REPORT INFORMATION
  Report Type: Report from Study
  Country: CA (occurrence: CA)
  Receive Date: 20130604
  Receipt Date: 20130718
  Transmission Date: 20140515
  Serious: Yes (Other)
  Sender: FDA-Public Use
  Company Number: CA-ROCHE-1209548

PATIENT
  Age: 59 Year
  Sex: Male
  Weight: 74 kg

DRUGS (17)
  1. AVASTIN [Suspect]
     Indication: GLIOBLASTOMA
     Route: 042
     Dates: start: 20130320
  2. KEPPRA [Concomitant]
  3. DEXAMETHASONE [Concomitant]
     Route: 065
     Dates: start: 20130417
  4. DEXAMETHASONE [Concomitant]
     Route: 065
     Dates: start: 20130430, end: 20130516
  5. CLONAZEPAM [Concomitant]
     Route: 065
     Dates: start: 20130417
  6. CLONAZEPAM [Concomitant]
     Route: 065
  7. ZANTAC [Concomitant]
  8. PREVACID [Concomitant]
     Route: 065
     Dates: start: 20130417
  9. PREVACID [Concomitant]
     Route: 065
  10. TYLENOL [Concomitant]
  11. CODEINE [Concomitant]
     Route: 065
  12. BENADRYL [Concomitant]
     Route: 048
     Dates: start: 20130404
  13. PENTASA [Concomitant]
     Route: 065
  14. PENTASA [Concomitant]
     Route: 065
  15. SOLU-MEDROL [Concomitant]
     Route: 042
     Dates: start: 20130404
  16. LOMUSTINE [Concomitant]
     Route: 065
     Dates: start: 20130608
  17. AMITRIPTYLINE [Concomitant]

REACTIONS (6)
  - Blood pressure increased [Recovering/Resolving]
  - Disease progression [Unknown]
  - Headache [Not Recovered/Not Resolved]
  - Dysphonia [Not Recovered/Not Resolved]
  - Weight decreased [Unknown]
  - Pyrexia [Recovered/Resolved]
